FAERS Safety Report 9943884 (Version 1)
Quarter: 2014Q1

REPORT INFORMATION
  Report Type: Spontaneous
  Country: US (occurrence: US)
  Receive Date: 20140303
  Receipt Date: 20140303
  Transmission Date: 20141002
  Serious: No
  Sender: FDA-Public Use
  Company Number: US-GILEAD-2012-0065403

PATIENT
  Sex: Male

DRUGS (1)
  1. RANEXA [Suspect]
     Indication: MYOCARDIAL ISCHAEMIA
     Dosage: 1000 MG, QD
     Route: 048

REACTIONS (4)
  - Amnesia [Unknown]
  - Disorientation [Unknown]
  - Dizziness [Unknown]
  - Constipation [Unknown]
